FAERS Safety Report 17528139 (Version 3)
Quarter: 2020Q4

REPORT INFORMATION
  Report Type: Spontaneous
  Country: US (occurrence: US)
  Receive Date: 20200311
  Receipt Date: 20201008
  Transmission Date: 20210113
  Serious: Yes (Hospitalization, Other)
  Sender: FDA-Public Use
  Company Number: US-VERTEX PHARMACEUTICALS-2020-001848

PATIENT
  Age: 19 Year
  Sex: Female

DRUGS (3)
  1. PULMOZYME [Concomitant]
     Active Substance: DORNASE ALFA
  2. TRIKAFTA [Suspect]
     Active Substance: ELEXACAFTOR\IVACAFTOR\TEZACAFTOR
     Dosage: 2 ORANGE TABLETS ONE DAY AND BLUE TABLET FOLLOWING DAY
     Route: 048
     Dates: start: 2020
  3. TRIKAFTA [Suspect]
     Active Substance: ELEXACAFTOR\IVACAFTOR\TEZACAFTOR
     Indication: CYSTIC FIBROSIS
     Dosage: 2 ORANGE TAB AM, 1 BLUE TAB PM, BID
     Route: 048
     Dates: start: 20191114, end: 202001

REACTIONS (10)
  - Diabetic ketoacidosis [Unknown]
  - Asthenia [Unknown]
  - Loss of consciousness [Unknown]
  - Inguinal hernia [Unknown]
  - Anuria [Unknown]
  - Kidney infection [Unknown]
  - Disorientation [Unknown]
  - Ovarian cyst [Unknown]
  - Fungal test positive [Unknown]
  - Acute kidney injury [Unknown]

NARRATIVE: CASE EVENT DATE: 202001
